FAERS Safety Report 17431232 (Version 1)
Quarter: 2020Q1

REPORT INFORMATION
  Report Type: Spontaneous
  Country: US (occurrence: US)
  Receive Date: 20200218
  Receipt Date: 20200218
  Transmission Date: 20200409
  Serious: No
  Sender: FDA-Public Use
  Company Number: US-NEXGEN PHARMA, INC.-2080609

PATIENT
  Age: 66 Year
  Sex: Male

DRUGS (1)
  1. CHENODAL [Suspect]
     Active Substance: CHENODIOL
     Indication: METABOLIC DISORDER
     Route: 048
     Dates: start: 20100528

REACTIONS (1)
  - Rhinorrhoea [Unknown]
